FAERS Safety Report 24942941 (Version 1)
Quarter: 2025Q1

REPORT INFORMATION
  Report Type: Spontaneous
  Country: US (occurrence: US)
  Receive Date: 20250207
  Receipt Date: 20250207
  Transmission Date: 20250409
  Serious: No
  Sender: SANOFI AVENTIS
  Company Number: US-SANOFI-02402286

PATIENT
  Age: 72 Year
  Sex: Female

DRUGS (2)
  1. DUPIXENT [Suspect]
     Active Substance: DUPILUMAB
     Indication: Hypersensitivity
     Dates: start: 202408
  2. DUPIXENT [Suspect]
     Active Substance: DUPILUMAB
     Indication: Blister

REACTIONS (3)
  - Blister [Unknown]
  - Dizziness [Unknown]
  - Drug effective for unapproved indication [Unknown]
